FAERS Safety Report 19868445 (Version 1)
Quarter: 2021Q3

REPORT INFORMATION
  Report Type: Spontaneous
  Country: FR (occurrence: FR)
  Receive Date: 20210921
  Receipt Date: 20210921
  Transmission Date: 20211014
  Serious: Yes (Hospitalization, Other)
  Sender: FDA-Public Use
  Company Number: FR-SA-2021SA310127

PATIENT
  Age: 70 Year
  Sex: Male
  Weight: 124 kg

DRUGS (13)
  1. METRONIDAZOLE. [Suspect]
     Active Substance: METRONIDAZOLE
     Indication: STAPHYLOCOCCAL SEPSIS
     Dosage: 1.5 G, QD
     Route: 048
     Dates: start: 20210805, end: 20210811
  2. DIFFU K [Concomitant]
     Active Substance: POTASSIUM CHLORIDE
     Dosage: 1.2 G, QD
     Route: 048
     Dates: end: 20210819
  3. CLOPIDOGREL HYDROCHLORIDE [Concomitant]
     Active Substance: CLOPIDOGREL HYDROCHLORIDE
     Route: 048
     Dates: end: 20210819
  4. VANCOMYCIN [Suspect]
     Active Substance: VANCOMYCIN
     Indication: ANTIBIOTIC THERAPY
     Dosage: 4 G, QD
     Route: 042
     Dates: start: 20210802, end: 20210810
  5. ALLOPURINOL. [Concomitant]
     Active Substance: ALLOPURINOL
     Route: 048
     Dates: end: 20210819
  6. ECONAZOLE. [Concomitant]
     Active Substance: ECONAZOLE NITRATE
     Dosage: 2 DF, QD
     Route: 003
     Dates: end: 20210819
  7. PYRIDOXINE HYDROCHLORIDE. [Concomitant]
     Active Substance: PYRIDOXINE HYDROCHLORIDE
     Dosage: 50 MG, QD
     Route: 048
     Dates: end: 202108
  8. GENTAMICIN SULFATE. [Suspect]
     Active Substance: GENTAMICIN SULFATE
     Indication: ANTIBIOTIC THERAPY
     Dosage: 372 MG, QD
     Route: 042
     Dates: start: 20210802, end: 20210805
  9. PARACETAMOL [Concomitant]
     Active Substance: ACETAMINOPHEN
     Dosage: 1 DF, PRN
     Route: 048
     Dates: end: 20210819
  10. RIFAMPICIN [Suspect]
     Active Substance: RIFAMPIN
     Indication: STAPHYLOCOCCAL SEPSIS
     Dosage: 1.2 G, QD
     Route: 042
     Dates: start: 20210802, end: 20210809
  11. FUROSEMIDE. [Concomitant]
     Active Substance: FUROSEMIDE
     Dosage: 120 MG, QD
     Route: 042
     Dates: start: 20210804, end: 20210809
  12. THIAMINE HYDROCHLORIDE. [Concomitant]
     Active Substance: THIAMINE HYDROCHLORIDE
     Dosage: 250 MG, QD
     Route: 048
     Dates: end: 202108
  13. ATORVASTATIN [Concomitant]
     Active Substance: ATORVASTATIN
     Route: 048
     Dates: end: 20210819

REACTIONS (1)
  - Renal failure [Not Recovered/Not Resolved]

NARRATIVE: CASE EVENT DATE: 20210807
